FAERS Safety Report 9393775 (Version 1)
Quarter: 2013Q3

REPORT INFORMATION
  Report Type: Spontaneous
  Country: US (occurrence: US)
  Receive Date: 20130710
  Receipt Date: 20130710
  Transmission Date: 20140515
  Serious: No
  Sender: FDA-Public Use
  Company Number: US-PFIZER INC-2013200547

PATIENT
  Age: 56 Year
  Sex: Female
  Weight: 56.69 kg

DRUGS (1)
  1. LIPITOR [Suspect]
     Indication: HYPERCHOLESTEROLAEMIA
     Dosage: UNK
     Dates: start: 2007, end: 2007

REACTIONS (2)
  - Muscular weakness [Recovered/Resolved]
  - Fatigue [Recovered/Resolved]
